FAERS Safety Report 5735788-0 (Version None)
Quarter: 2008Q2

REPORT INFORMATION
  Report Type: 
  Country: None (occurrence: None)
  Receive Date: 20080508
  Receipt Date: 20080508
  Transmission Date: 20081010
  Serious: Yes (Other)
  Sender: FDA-Public Use
  Company Number: None

PATIENT
  Age: 33 Year
  Sex: Female
  Weight: 84.4 kg

DRUGS (1)
  1. MEPERIDINE HCL [Suspect]
     Dosage: 75 MG  IV BOLUS
     Route: 040
     Dates: start: 20070324, end: 20070326

REACTIONS (1)
  - RESPIRATORY DEPRESSION [None]
